FAERS Safety Report 4663102-0 (Version None)
Quarter: 2005Q2

REPORT INFORMATION
  Report Type: 
  Country: None (occurrence: None)
  Receive Date: 20050511
  Receipt Date: 20050304
  Transmission Date: 20051028
  Serious: Yes (Hospitalization)
  Sender: FDA-Public Use
  Company Number: 397709

PATIENT
  Age: 50 Year
  Sex: Male
  Weight: 72.6 kg

DRUGS (4)
  1. PEGASYS [Suspect]
     Indication: HEPATITIS C VIRUS
     Dates: start: 20050211, end: 20050303
  2. COPEGUS [Suspect]
     Indication: HEPATITIS C VIRUS
     Dosage: 200 MG 5 PER DAY ORAL
     Route: 048
     Dates: start: 20050211, end: 20050303
  3. ANTIHYPERTENSIVES (ANTIHYPERTENSIVE NOS) [Concomitant]
  4. ANTIDEPRESSANTS (ANTIDEPRESSANTS) [Concomitant]

REACTIONS (5)
  - DIZZINESS [None]
  - HAEMATEMESIS [None]
  - LOSS OF CONSCIOUSNESS [None]
  - OESOPHAGEAL VARICES HAEMORRHAGE [None]
  - WEIGHT DECREASED [None]
